FAERS Safety Report 10497183 (Version 4)
Quarter: 2015Q1

REPORT INFORMATION
  Report Type: Report from Study
  Country: IL (occurrence: IL)
  Receive Date: 20141006
  Receipt Date: 20150331
  Transmission Date: 20150720
  Serious: Yes (Hospitalization)
  Sender: FDA-Public Use
  Company Number: IL-BAYER-2014-132944

PATIENT
  Age: 68 Year
  Sex: Male
  Weight: 95.4 kg

DRUGS (4)
  1. RADIUM-223 DICHLORIDE [Suspect]
     Active Substance: RADIUM RA-223 DICHLORIDE
     Indication: PROSTATE CANCER STAGE IV
     Dosage: 80 KBQ/DAY
     Route: 042
     Dates: start: 20140729, end: 20140729
  2. ZINNAT [Concomitant]
     Active Substance: CEFUROXIME AXETIL
     Indication: TOOTH INFECTION
     Dosage: 500 MG, UNK
     Route: 048
     Dates: start: 20140820, end: 20140830
  3. FLAGYL [Concomitant]
     Active Substance: METRONIDAZOLE\METRONIDAZOLE HYDROCHLORIDE
     Indication: DIARRHOEA
     Dosage: 1500MG DAILY
     Route: 048
     Dates: start: 20140901, end: 20140908
  4. RADIUM-223 DICHLORIDE [Suspect]
     Active Substance: RADIUM RA-223 DICHLORIDE
     Indication: METASTASES TO BONE
     Dosage: 80 KBQ/DAY
     Route: 042
     Dates: start: 20140824, end: 20140824

REACTIONS (1)
  - Febrile neutropenia [Recovered/Resolved]

NARRATIVE: CASE EVENT DATE: 20140831
